FAERS Safety Report 17457745 (Version 1)
Quarter: 2020Q1

REPORT INFORMATION
  Report Type: Report from Study
  Country: US (occurrence: US)
  Receive Date: 20200225
  Receipt Date: 20200225
  Transmission Date: 20200409
  Serious: Yes (Other)
  Sender: FDA-Public Use
  Company Number: US-JNJFOC-20200224940

PATIENT
  Age: 65 Year
  Sex: Female

DRUGS (1)
  1. SPRAVATO [Suspect]
     Active Substance: ESKETAMINE
     Indication: DEPRESSION

REACTIONS (3)
  - Dissociation [Unknown]
  - Hypertension [Recovered/Resolved]
  - Sedation [Unknown]

NARRATIVE: CASE EVENT DATE: 20200213
